FAERS Safety Report 4538273-7 (Version None)
Quarter: 2004Q4

REPORT INFORMATION
  Report Type: 
  Country: None (occurrence: None)
  Receive Date: 20041221
  Receipt Date: 20041208
  Transmission Date: 20050328
  Serious: Yes (Other)
  Sender: FDA-Public Use
  Company Number: 2003178331US

PATIENT
  Sex: Female

DRUGS (2)
  1. CYTOTEC [Suspect]
     Indication: INDUCED LABOUR
     Dosage: 1 IN 2 TOTAL, VAGINAL
     Route: 067
     Dates: start: 20010323, end: 20010323
  2. OXYTOCIN 10 USP UNITS IN DEXTROSE 5% [Suspect]
     Indication: ILL-DEFINED DISORDER
     Dosage: SINGLE
     Dates: start: 20010323, end: 20010323

REACTIONS (13)
  - BLOOD PROLACTIN INCREASED [None]
  - BLOOD THYROID STIMULATING HORMONE DECREASED [None]
  - DIZZINESS [None]
  - HEADACHE [None]
  - HORMONE LEVEL ABNORMAL [None]
  - HYPOPHYSITIS [None]
  - HYPOTENSION [None]
  - LIBIDO DECREASED [None]
  - PITUITARY TUMOUR [None]
  - POSTPARTUM HAEMORRHAGE [None]
  - POSTPARTUM HYPOPITUITARISM [None]
  - SUPPRESSED LACTATION [None]
  - VISION BLURRED [None]
